FAERS Safety Report 4552309-9 (Version None)
Quarter: 2005Q1

REPORT INFORMATION
  Report Type: 
  Country: None (occurrence: None)
  Receive Date: 20050114
  Receipt Date: 20040105
  Transmission Date: 20050727
  Serious: No
  Sender: FDA-Public Use
  Company Number: UNKNOWN

PATIENT
  Sex: Male

DRUGS (2)
  1. IMITREX [Suspect]
     Indication: MIGRAINE
     Route: 065
  2. MAXALT [Concomitant]

REACTIONS (1)
  - DRUG INEFFECTIVE [None]
